FAERS Safety Report 5002729-3 (Version None)
Quarter: 2006Q2

REPORT INFORMATION
  Report Type: 
  Country: None (occurrence: None)
  Receive Date: 20060516
  Receipt Date: 20060505
  Transmission Date: 20061013
  Serious: Yes (Hospitalization)
  Sender: FDA-Public Use
  Company Number: CA-ABBOTT-06P-028-0332530-00

PATIENT
  Sex: Female

DRUGS (2)
  1. LIPIDIL SUPRA 160MG [Suspect]
     Indication: HYPERTRIGLYCERIDAEMIA
     Route: 048
  2. VALPROIC ACID [Interacting]
     Indication: DRUG USE FOR UNKNOWN INDICATION

REACTIONS (4)
  - DRUG INTERACTION [None]
  - DRUG LEVEL INCREASED [None]
  - INCOHERENT [None]
  - SOMNOLENCE [None]
